FAERS Safety Report 21733886 (Version 1)
Quarter: 2022Q4

REPORT INFORMATION
  Report Type: Report from Study
  Country: US (occurrence: US)
  Receive Date: 20221215
  Receipt Date: 20221215
  Transmission Date: 20230113
  Serious: No
  Sender: FDA-Public Use
  Company Number: US-ABBVIE-4198375

PATIENT
  Age: 51 Year
  Sex: Female

DRUGS (1)
  1. HUMIRA [Suspect]
     Active Substance: ADALIMUMAB
     Indication: Psoriasis
     Dosage: FORM STRENGTH 40 MG?CITRATE FREE
     Route: 058

REACTIONS (3)
  - COVID-19 [Recovered/Resolved]
  - Pharyngitis streptococcal [Unknown]
  - Bronchitis [Unknown]

NARRATIVE: CASE EVENT DATE: 20221004
